FAERS Safety Report 5805702-8 (Version None)
Quarter: 2008Q3

REPORT INFORMATION
  Report Type: 
  Country: None (occurrence: None)
  Receive Date: 20080708
  Receipt Date: 20080708
  Transmission Date: 20090109
  Serious: Yes (Hospitalization)
  Sender: FDA-Public Use
  Company Number: None

PATIENT
  Age: 72 Year
  Sex: Female
  Weight: 90.7194 kg

DRUGS (1)
  1. CIPRO [Suspect]
     Indication: URINARY TRACT INFECTION
     Dosage: PO, 48 HOURS APPROX.
     Route: 048
     Dates: start: 20080603, end: 20080605

REACTIONS (3)
  - DIZZINESS [None]
  - ILL-DEFINED DISORDER [None]
  - MALAISE [None]
